FAERS Safety Report 5840895-8 (Version None)
Quarter: 2008Q3

REPORT INFORMATION
  Report Type: 
  Country: None (occurrence: None)
  Receive Date: 20080730
  Receipt Date: 20080421
  Transmission Date: 20090109
  Serious: Yes (Other)
  Sender: FDA-Public Use
  Company Number: PHEH2008US02356

PATIENT
  Age: 71 Year
  Sex: Female

DRUGS (2)
  1. TEKTURNA [Suspect]
     Indication: HYPERTENSION
     Dosage: 150MG/QD
     Dates: start: 20070730
  2. PLAVIX [Concomitant]

REACTIONS (11)
  - ASTHENIA [None]
  - HYPERSENSITIVITY [None]
  - JOINT SWELLING [None]
  - LIP DISCOLOURATION [None]
  - LIP DRY [None]
  - LIP HAEMORRHAGE [None]
  - LIP SWELLING [None]
  - MYALGIA [None]
  - PAIN [None]
  - SWELLING FACE [None]
  - THERAPY RESPONDER [None]
